FAERS Safety Report 13390915 (Version 1)
Quarter: 2017Q1

REPORT INFORMATION
  Report Type: Spontaneous
  Country: US (occurrence: US)
  Receive Date: 20170331
  Receipt Date: 20170331
  Transmission Date: 20170429
  Serious: No
  Sender: FDA-Public Use
  Company Number: US-ELI_LILLY_AND_COMPANY-US201608005468

PATIENT
  Age: 40 Year
  Sex: Female

DRUGS (16)
  1. LISINOPRIL. [Concomitant]
     Active Substance: LISINOPRIL
     Dosage: 30 MG, QD
     Route: 048
  2. GABAPENTIN. [Concomitant]
     Active Substance: GABAPENTIN
     Dosage: 300 MG, TID
     Route: 065
  3. SILVADENE [Concomitant]
     Active Substance: SILVER SULFADIAZINE
     Dosage: UNK, QD
     Route: 061
  4. CYMBALTA [Suspect]
     Active Substance: DULOXETINE HYDROCHLORIDE
     Indication: FIBROMYALGIA
     Dosage: 30 MG, QD
     Route: 048
     Dates: start: 20121022
  5. LISINOPRIL. [Concomitant]
     Active Substance: LISINOPRIL
     Dosage: 20 MG, QD
     Route: 048
  6. AVONEX [Concomitant]
     Active Substance: INTERFERON BETA-1A
     Dosage: 30 UG, UNKNOWN
     Route: 065
  7. LYRICA [Concomitant]
     Active Substance: PREGABALIN
     Indication: FIBROMYALGIA
     Route: 065
  8. CYMBALTA [Suspect]
     Active Substance: DULOXETINE HYDROCHLORIDE
     Dosage: 60 MG, QD
     Route: 048
     Dates: end: 20150609
  9. LISINOPRIL. [Concomitant]
     Active Substance: LISINOPRIL
     Dosage: 40 MG, QD
     Route: 048
  10. BACLOFEN. [Concomitant]
     Active Substance: BACLOFEN
     Indication: MUSCLE SPASMS
     Dosage: 10 MG, PRN
     Route: 065
  11. NORCO [Concomitant]
     Active Substance: ACETAMINOPHEN\HYDROCODONE BITARTRATE
     Dosage: 1 DF, PRN
     Route: 065
  12. AUBAGIO [Concomitant]
     Active Substance: TERIFLUNOMIDE
     Dosage: 14 MG, UNKNOWN
     Route: 065
  13. NEURONTIN [Concomitant]
     Active Substance: GABAPENTIN
     Dosage: 300 MG, TID
     Route: 065
  14. CYMBALTA [Suspect]
     Active Substance: DULOXETINE HYDROCHLORIDE
     Dosage: 60 MG, QD
     Route: 048
     Dates: start: 20131007, end: 201501
  15. CYMBALTA [Suspect]
     Active Substance: DULOXETINE HYDROCHLORIDE
     Dosage: 30 MG, QD
     Route: 048
     Dates: start: 20150212
  16. LYRICA [Concomitant]
     Active Substance: PREGABALIN
     Dosage: 50 MG, TID
     Route: 065

REACTIONS (23)
  - Crying [Unknown]
  - Tremor [Unknown]
  - Paraesthesia [Unknown]
  - Vomiting [Unknown]
  - Tinnitus [Unknown]
  - Drug ineffective [Unknown]
  - Diarrhoea [Unknown]
  - Hypoacusis [Unknown]
  - Vertigo [Unknown]
  - Headache [Unknown]
  - Hypoaesthesia [Unknown]
  - Migraine [Unknown]
  - Nausea [Unknown]
  - Photophobia [Unknown]
  - Drug withdrawal syndrome [Unknown]
  - Dizziness [Unknown]
  - Emotional disorder [Unknown]
  - Fatigue [Unknown]
  - Muscle spasms [Unknown]
  - Anxiety [Unknown]
  - Depression [Unknown]
  - Balance disorder [Unknown]
  - Lethargy [Unknown]

NARRATIVE: CASE EVENT DATE: 20121211
